FAERS Safety Report 9779734 (Version 1)
Quarter: 2013Q4

REPORT INFORMATION
  Report Type: Spontaneous
  Country: US (occurrence: US)
  Receive Date: 20131223
  Receipt Date: 20131223
  Transmission Date: 20140711
  Serious: Yes (Other)
  Sender: FDA-Public Use
  Company Number: US-GLAXOSMITHKLINE-A1054295A

PATIENT
  Age: 70 Year
  Sex: Male

DRUGS (16)
  1. VOTRIENT [Suspect]
     Indication: RENAL CELL CARCINOMA
     Dosage: 800MG PER DAY
     Route: 048
     Dates: start: 20131002, end: 20131218
  2. ASPIRIN [Concomitant]
  3. ATIVAN [Concomitant]
  4. CALCIUM [Concomitant]
  5. TAMSULOSIN [Concomitant]
  6. CYMBALTA [Concomitant]
  7. FELODIPINE [Concomitant]
  8. K-PHOS [Concomitant]
  9. LOSARTAN [Concomitant]
  10. METOPROLOL [Concomitant]
  11. OXYCODONE [Concomitant]
  12. PROTONIX [Concomitant]
  13. TERAZOSIN [Concomitant]
  14. TORSEMIDE [Concomitant]
  15. TRIAZOLAM [Concomitant]
  16. XGEVA [Concomitant]

REACTIONS (2)
  - Cardiotoxicity [Unknown]
  - Blood pressure increased [Unknown]
